FAERS Safety Report 23985751 (Version 1)
Quarter: 2024Q2

REPORT INFORMATION
  Report Type: Spontaneous
  Country: RU (occurrence: RU)
  Receive Date: 20240618
  Receipt Date: 20240618
  Transmission Date: 20240715
  Serious: Yes (Death, Other)
  Sender: FDA-Public Use
  Company Number: RU-ELI_LILLY_AND_COMPANY-RU202406009935

PATIENT
  Age: 65 Year
  Sex: Male

DRUGS (1)
  1. RAMUCIRUMAB [Suspect]
     Active Substance: RAMUCIRUMAB
     Indication: Hepatocellular carcinoma
     Dosage: 8 MG/KG, OTHER (ONCE EVERY TWO WEEK)
     Route: 065
     Dates: start: 20231112

REACTIONS (2)
  - Malignant neoplasm progression [Fatal]
  - Pancreatitis chronic [Unknown]

NARRATIVE: CASE EVENT DATE: 20231224
